FAERS Safety Report 24559584 (Version 2)
Quarter: 2024Q4

REPORT INFORMATION
  Report Type: Spontaneous
  Country: NZ (occurrence: NZ)
  Receive Date: 20241029
  Receipt Date: 20241121
  Transmission Date: 20250115
  Serious: Yes (Hospitalization)
  Sender: CSL BEHRING
  Company Number: NZ-BEH-2024182622

PATIENT
  Age: 72 Year
  Sex: Female
  Weight: 79 kg

DRUGS (53)
  1. HUMAN IMMUNOGLOBULIN G [Suspect]
     Active Substance: HUMAN IMMUNOGLOBULIN G
     Indication: Myositis
     Dosage: APPROX 70 G, (PRIVIGEN NZ 10G 100ML)
     Route: 042
     Dates: start: 20241011, end: 20241011
  2. HUMAN IMMUNOGLOBULIN G [Suspect]
     Active Substance: HUMAN IMMUNOGLOBULIN G
     Dosage: APPROX 70 G (PRIVIGEN NZ 20G 200ML)
     Route: 042
     Dates: start: 20241011, end: 20241011
  3. HUMAN IMMUNOGLOBULIN G [Suspect]
     Active Substance: HUMAN IMMUNOGLOBULIN G
     Dosage: APPROX 70 G (PRIVIGEN NZ 5G 50ML)
     Route: 042
     Dates: start: 20241011, end: 20241011
  4. HUMAN IMMUNOGLOBULIN G [Suspect]
     Active Substance: HUMAN IMMUNOGLOBULIN G
     Dosage: PRIVIGEN NZ 10G 100ML
     Route: 042
     Dates: start: 20240712
  5. HUMAN IMMUNOGLOBULIN G [Suspect]
     Active Substance: HUMAN IMMUNOGLOBULIN G
     Dosage: PRIVIGEN NZ 20G 200ML
     Route: 042
     Dates: start: 20240712
  6. HUMAN IMMUNOGLOBULIN G [Suspect]
     Active Substance: HUMAN IMMUNOGLOBULIN G
     Dosage: PRIVIGEN NZ 5G 50ML
     Route: 042
     Dates: start: 20240712
  7. HUMAN IMMUNOGLOBULIN G [Suspect]
     Active Substance: HUMAN IMMUNOGLOBULIN G
     Dosage: PRIVIGEN NZ 10G 100ML
     Route: 042
     Dates: start: 20240419
  8. HUMAN IMMUNOGLOBULIN G [Suspect]
     Active Substance: HUMAN IMMUNOGLOBULIN G
     Dosage: PRIVIGEN NZ 20G 200ML
     Route: 042
     Dates: start: 20240419
  9. HUMAN IMMUNOGLOBULIN G [Suspect]
     Active Substance: HUMAN IMMUNOGLOBULIN G
     Dosage: PRIVIGEN NZ 5G 50ML
     Route: 042
     Dates: start: 20240419
  10. HUMAN IMMUNOGLOBULIN G [Suspect]
     Active Substance: HUMAN IMMUNOGLOBULIN G
     Dosage: PRIVIGEN NZ 10G 100ML
     Route: 042
     Dates: start: 20240126
  11. HUMAN IMMUNOGLOBULIN G [Suspect]
     Active Substance: HUMAN IMMUNOGLOBULIN G
     Dosage: PRIVIGEN NZ 20G 200ML
     Route: 042
     Dates: start: 20240126
  12. HUMAN IMMUNOGLOBULIN G [Suspect]
     Active Substance: HUMAN IMMUNOGLOBULIN G
     Dosage: PRIVIGEN NZ 10G 100ML
     Route: 042
     Dates: start: 20231103
  13. HUMAN IMMUNOGLOBULIN G [Suspect]
     Active Substance: HUMAN IMMUNOGLOBULIN G
     Dosage: PRIVIGEN NZ 20G 200ML
     Route: 042
     Dates: start: 20231103
  14. INTRAGAM P [Concomitant]
     Active Substance: HUMAN IMMUNOGLOBULIN G
     Dosage: 12G
     Dates: start: 20230804
  15. INTRAGAM P [Concomitant]
     Active Substance: HUMAN IMMUNOGLOBULIN G
     Dosage: 12G
     Dates: start: 20230512
  16. INTRAGAM P [Concomitant]
     Active Substance: HUMAN IMMUNOGLOBULIN G
     Dosage: 12G
     Dates: start: 20230512
  17. INTRAGAM P [Concomitant]
     Active Substance: HUMAN IMMUNOGLOBULIN G
     Dosage: 12G
     Dates: start: 20230217
  18. INTRAGAM P [Concomitant]
     Active Substance: HUMAN IMMUNOGLOBULIN G
     Dosage: 12G
     Dates: start: 20221125
  19. INTRAGAM P [Concomitant]
     Active Substance: HUMAN IMMUNOGLOBULIN G
     Dosage: 12G
     Dates: start: 20220913
  20. INTRAGAM P [Concomitant]
     Active Substance: HUMAN IMMUNOGLOBULIN G
     Dosage: 12G
     Dates: start: 20220614
  21. INTRAGAM P [Concomitant]
     Active Substance: HUMAN IMMUNOGLOBULIN G
     Dosage: 12G
     Dates: start: 20220314
  22. INTRAGAM P [Concomitant]
     Active Substance: HUMAN IMMUNOGLOBULIN G
     Dosage: 12G
     Dates: start: 20210909
  23. INTRAGAM P [Concomitant]
     Active Substance: HUMAN IMMUNOGLOBULIN G
     Dosage: 12G
     Dates: start: 20210908
  24. INTRAGAM P [Concomitant]
     Active Substance: HUMAN IMMUNOGLOBULIN G
     Dosage: 12G
     Dates: start: 20210907
  25. INTRAGAM P [Concomitant]
     Active Substance: HUMAN IMMUNOGLOBULIN G
     Dosage: 12G
     Dates: start: 20210906
  26. INTRAGAM P [Concomitant]
     Active Substance: HUMAN IMMUNOGLOBULIN G
     Dosage: 12G
     Dates: start: 20210729
  27. INTRAGAM P [Concomitant]
     Active Substance: HUMAN IMMUNOGLOBULIN G
     Dosage: 12G
     Dates: start: 20210727
  28. INTRAGAM P [Concomitant]
     Active Substance: HUMAN IMMUNOGLOBULIN G
     Dosage: 12G
     Dates: start: 20210726
  29. INTRAGAM P [Concomitant]
     Active Substance: HUMAN IMMUNOGLOBULIN G
     Dosage: 12G
     Dates: start: 20210723
  30. INTRAGAM P [Concomitant]
     Active Substance: HUMAN IMMUNOGLOBULIN G
     Dosage: 12G
     Dates: start: 20200123
  31. INTRAGAM P [Concomitant]
     Active Substance: HUMAN IMMUNOGLOBULIN G
     Dosage: 12G
     Dates: start: 20200117
  32. INTRAGAM P [Concomitant]
     Active Substance: HUMAN IMMUNOGLOBULIN G
     Dosage: 12G
     Dates: start: 20200117
  33. INTRAGAM P [Concomitant]
     Active Substance: HUMAN IMMUNOGLOBULIN G
     Dosage: 12G
     Dates: start: 20200117
  34. INTRAGAM P [Concomitant]
     Active Substance: HUMAN IMMUNOGLOBULIN G
     Dosage: 12G
     Dates: start: 20191219
  35. INTRAGAM P [Concomitant]
     Active Substance: HUMAN IMMUNOGLOBULIN G
     Dosage: 12G
     Dates: start: 20191218
  36. INTRAGAM P [Concomitant]
     Active Substance: HUMAN IMMUNOGLOBULIN G
     Dosage: 12G
     Dates: start: 20191217
  37. INTRAGAM P [Concomitant]
     Active Substance: HUMAN IMMUNOGLOBULIN G
     Dosage: 12G
     Dates: start: 20191216
  38. INTRAGAM P [Concomitant]
     Active Substance: HUMAN IMMUNOGLOBULIN G
     Dosage: 12G
     Dates: start: 20191121
  39. INTRAGAM P [Concomitant]
     Active Substance: HUMAN IMMUNOGLOBULIN G
     Dosage: 12G
     Dates: start: 20191120
  40. INTRAGAM P [Concomitant]
     Active Substance: HUMAN IMMUNOGLOBULIN G
     Dosage: 12G
     Dates: start: 20191118
  41. INTRAGAM P [Concomitant]
     Active Substance: HUMAN IMMUNOGLOBULIN G
     Dosage: 12G
     Dates: start: 20191115
  42. INTRAGAM P [Concomitant]
     Active Substance: HUMAN IMMUNOGLOBULIN G
     Dosage: 12G
     Dates: start: 20190327
  43. INTRAGAM P [Concomitant]
     Active Substance: HUMAN IMMUNOGLOBULIN G
     Dosage: 12G
     Dates: start: 20190325
  44. INTRAGAM P [Concomitant]
     Active Substance: HUMAN IMMUNOGLOBULIN G
     Dosage: 12G
     Dates: start: 20190325
  45. INTRAGAM P [Concomitant]
     Active Substance: HUMAN IMMUNOGLOBULIN G
     Dosage: 12G
     Dates: start: 20190325
  46. INTRAGAM P [Concomitant]
     Active Substance: HUMAN IMMUNOGLOBULIN G
     Dosage: 12G
     Dates: start: 20190301
  47. INTRAGAM P [Concomitant]
     Active Substance: HUMAN IMMUNOGLOBULIN G
     Dosage: 12G
     Dates: start: 20190228
  48. INTRAGAM P [Concomitant]
     Active Substance: HUMAN IMMUNOGLOBULIN G
     Dosage: 12G
     Dates: start: 20190227
  49. INTRAGAM P [Concomitant]
     Active Substance: HUMAN IMMUNOGLOBULIN G
     Dosage: 12G
     Dates: start: 20190226
  50. INTRAGAM P [Concomitant]
     Active Substance: HUMAN IMMUNOGLOBULIN G
     Dosage: 12G
     Dates: start: 20190125
  51. INTRAGAM P [Concomitant]
     Active Substance: HUMAN IMMUNOGLOBULIN G
     Dosage: 12G
     Dates: start: 20190124
  52. INTRAGAM P [Concomitant]
     Active Substance: HUMAN IMMUNOGLOBULIN G
     Dosage: 12G
     Dates: start: 20190123
  53. INTRAGAM P [Concomitant]
     Active Substance: HUMAN IMMUNOGLOBULIN G
     Dosage: 12G
     Dates: start: 20190122

REACTIONS (5)
  - Hypersensitivity [Recovered/Resolved]
  - Pruritus [Recovered/Resolved]
  - Hypertension [Recovered/Resolved]
  - Chest discomfort [Recovered/Resolved]
  - Wheezing [Recovered/Resolved]

NARRATIVE: CASE EVENT DATE: 20241011
